FAERS Safety Report 21170264 (Version 2)
Quarter: 2022Q3

REPORT INFORMATION
  Report Type: Report from Study
  Country: DE (occurrence: None)
  Receive Date: 20220804
  Receipt Date: 20220818
  Transmission Date: 20221026
  Serious: Yes (Hospitalization)
  Sender: FDA-Public Use
  Company Number: DE-ROCHE-2291185

PATIENT
  Age: 34 Year
  Sex: Female
  Weight: 76 kg

DRUGS (55)
  1. ATEZOLIZUMAB [Suspect]
     Active Substance: ATEZOLIZUMAB
     Indication: HER2 positive breast cancer
     Dosage: DATE OF MOST RECENT DOSE OF ATEZOLIZUMAB PRIOR TO SAE ONSET: 21/MAR/2019
     Route: 041
     Dates: start: 20190205
  2. DOXORUBICIN [Suspect]
     Active Substance: DOXORUBICIN
     Indication: HER2 positive breast cancer
     Dosage: DATE OF LAST DOXORUBICIN ADMINISTERED PRIOR TO SAE ONSET: 21/MAR/2012, 21/MAR/2019 AND DOSE WAS 106.
     Route: 042
     Dates: start: 20190205
  3. CYCLOPHOSPHAMIDE [Suspect]
     Active Substance: CYCLOPHOSPHAMIDE
     Indication: HER2 positive breast cancer
     Dosage: DATE OF MOST RECENT DOSE OF CYCLOPHOSPHAMIDE PRIOR TO SAE ONSET: 21/MAR/2019 AND DOSE WAS 1068 MG.
     Route: 042
     Dates: start: 20190205
  4. IBUPROFEN [Concomitant]
     Active Substance: IBUPROFEN
     Indication: Headache
     Route: 048
     Dates: start: 20190206, end: 20190630
  5. IBUPROFEN [Concomitant]
     Active Substance: IBUPROFEN
     Indication: Gait disturbance
     Route: 048
     Dates: start: 20190417, end: 20190630
  6. ACETAMINOPHEN [Concomitant]
     Active Substance: ACETAMINOPHEN
     Indication: Headache
     Route: 048
     Dates: start: 20190206, end: 20190228
  7. MAGALDRATE [Concomitant]
     Active Substance: MAGALDRATE
     Indication: Abdominal pain upper
     Route: 048
     Dates: start: 20190213, end: 20190413
  8. PANTOZOL [Concomitant]
     Active Substance: PANTOPRAZOLE SODIUM
     Indication: Abdominal pain upper
     Route: 048
     Dates: start: 20190213
  9. LIPEGFILGRASTIM [Concomitant]
     Active Substance: LIPEGFILGRASTIM
     Indication: Prophylaxis
     Dates: start: 20190206
  10. LIPEGFILGRASTIM [Concomitant]
     Active Substance: LIPEGFILGRASTIM
     Dates: start: 20190308, end: 20190308
  11. LIPEGFILGRASTIM [Concomitant]
     Active Substance: LIPEGFILGRASTIM
     Dates: start: 20190322, end: 20190322
  12. DEXAMETHASONE [Concomitant]
     Active Substance: DEXAMETHASONE
     Indication: Prophylaxis
     Dates: start: 20190219
  13. DEXAMETHASONE [Concomitant]
     Active Substance: DEXAMETHASONE
     Route: 048
     Dates: start: 20190307, end: 20190307
  14. DEXAMETHASONE [Concomitant]
     Active Substance: DEXAMETHASONE
     Route: 048
     Dates: start: 20190321, end: 20190321
  15. DEXAMETHASONE [Concomitant]
     Active Substance: DEXAMETHASONE
     Route: 048
     Dates: start: 20190403, end: 20190403
  16. DEXAMETHASONE [Concomitant]
     Active Substance: DEXAMETHASONE
     Route: 048
     Dates: start: 20190416, end: 20190416
  17. DEXAMETHASONE [Concomitant]
     Active Substance: DEXAMETHASONE
     Route: 048
     Dates: start: 20190423, end: 20190423
  18. DEXAMETHASONE [Concomitant]
     Active Substance: DEXAMETHASONE
     Route: 048
     Dates: start: 20190430, end: 20190430
  19. DEXAMETHASONE [Concomitant]
     Active Substance: DEXAMETHASONE
     Route: 048
     Dates: start: 20190507, end: 20190507
  20. DEXAMETHASONE [Concomitant]
     Active Substance: DEXAMETHASONE
     Route: 048
     Dates: start: 20190514, end: 20190514
  21. DEXAMETHASONE [Concomitant]
     Active Substance: DEXAMETHASONE
     Route: 048
     Dates: start: 20190521, end: 20190521
  22. DEXAMETHASONE [Concomitant]
     Active Substance: DEXAMETHASONE
     Route: 048
     Dates: start: 20190528, end: 20190528
  23. DEXAMETHASONE [Concomitant]
     Active Substance: DEXAMETHASONE
     Route: 048
     Dates: start: 20190604, end: 20190604
  24. ROLAPITANT [Concomitant]
     Active Substance: ROLAPITANT
     Indication: Prophylaxis
     Dates: start: 20190219, end: 20190321
  25. ROLAPITANT [Concomitant]
     Active Substance: ROLAPITANT
     Dates: start: 20190307, end: 20190307
  26. ROLAPITANT [Concomitant]
     Active Substance: ROLAPITANT
     Dates: start: 20190321, end: 20190321
  27. ALOXI [Concomitant]
     Active Substance: PALONOSETRON HYDROCHLORIDE
     Indication: Prophylaxis
     Dates: start: 20190219, end: 20190321
  28. ALOXI [Concomitant]
     Active Substance: PALONOSETRON HYDROCHLORIDE
     Dates: start: 20190307, end: 20190307
  29. ALOXI [Concomitant]
     Active Substance: PALONOSETRON HYDROCHLORIDE
     Dates: start: 20190321, end: 20190321
  30. DIMETHINDENE [Concomitant]
     Active Substance: DIMETHINDENE
     Indication: Urticaria
     Dates: start: 20190403, end: 20190403
  31. DIMETHINDENE [Concomitant]
     Active Substance: DIMETHINDENE
     Indication: Prophylaxis
     Dates: start: 20190311, end: 20190311
  32. DIMETHINDENE [Concomitant]
     Active Substance: DIMETHINDENE
     Dates: start: 20190416, end: 20190416
  33. DIMETHINDENE [Concomitant]
     Active Substance: DIMETHINDENE
     Dates: start: 20190423, end: 20190423
  34. DIMETHINDENE [Concomitant]
     Active Substance: DIMETHINDENE
     Dates: start: 20190430, end: 20190430
  35. DIMETHINDENE [Concomitant]
     Active Substance: DIMETHINDENE
     Dates: start: 20190507, end: 20190507
  36. DIMETHINDENE [Concomitant]
     Active Substance: DIMETHINDENE
     Dates: start: 20190514, end: 20190514
  37. DIMETHINDENE [Concomitant]
     Active Substance: DIMETHINDENE
     Dates: start: 20190521, end: 20190521
  38. DIMETHINDENE [Concomitant]
     Active Substance: DIMETHINDENE
     Dates: start: 20190528, end: 20190528
  39. DIMETHINDENE [Concomitant]
     Active Substance: DIMETHINDENE
     Dates: start: 20190604, end: 20190604
  40. RANITIDINE HYDROCHLORIDE [Concomitant]
     Active Substance: RANITIDINE HYDROCHLORIDE
     Indication: Urticaria
     Dates: start: 20190403, end: 20190403
  41. RANITIDINE HYDROCHLORIDE [Concomitant]
     Active Substance: RANITIDINE HYDROCHLORIDE
     Indication: Prophylaxis
     Dates: start: 20190311, end: 20190311
  42. RANITIDINE HYDROCHLORIDE [Concomitant]
     Active Substance: RANITIDINE HYDROCHLORIDE
     Dates: start: 20190416, end: 20190416
  43. RANITIDINE HYDROCHLORIDE [Concomitant]
     Active Substance: RANITIDINE HYDROCHLORIDE
     Dates: start: 20190423, end: 20190423
  44. RANITIDINE HYDROCHLORIDE [Concomitant]
     Active Substance: RANITIDINE HYDROCHLORIDE
     Dates: start: 20190430, end: 20190430
  45. RANITIDINE HYDROCHLORIDE [Concomitant]
     Active Substance: RANITIDINE HYDROCHLORIDE
     Dates: start: 20190407, end: 20190407
  46. RANITIDINE HYDROCHLORIDE [Concomitant]
     Active Substance: RANITIDINE HYDROCHLORIDE
     Dates: start: 20190514, end: 20190514
  47. RANITIDINE HYDROCHLORIDE [Concomitant]
     Active Substance: RANITIDINE HYDROCHLORIDE
     Dates: start: 20190521, end: 20190521
  48. RANITIDINE HYDROCHLORIDE [Concomitant]
     Active Substance: RANITIDINE HYDROCHLORIDE
     Dates: start: 20190528, end: 20190528
  49. RANITIDINE HYDROCHLORIDE [Concomitant]
     Active Substance: RANITIDINE HYDROCHLORIDE
     Dates: start: 20190604, end: 20190604
  50. PIPERACILLIN SODIUM\TAZOBACTAM SODIUM [Concomitant]
     Active Substance: PIPERACILLIN SODIUM\TAZOBACTAM SODIUM
     Indication: Febrile infection
     Dates: start: 20190311, end: 20190311
  51. VANCOMYCIN [Concomitant]
     Active Substance: VANCOMYCIN
     Indication: Febrile infection
     Dates: start: 20190312, end: 20190315
  52. MEROPENEM [Concomitant]
     Active Substance: MEROPENEM
     Indication: Febrile infection
     Dates: start: 20190312, end: 20190315
  53. PANTOPRAZOLE SODIUM [Concomitant]
     Active Substance: PANTOPRAZOLE SODIUM
     Dates: start: 20190325, end: 20190401
  54. TAMOXIFEN [Concomitant]
     Active Substance: TAMOXIFEN
     Dates: start: 20190812
  55. MCP [Concomitant]
     Active Substance: METOCLOPRAMIDE HYDROCHLORIDE
     Indication: Nausea
     Route: 048
     Dates: start: 20190206, end: 20190406

REACTIONS (1)
  - Gastrointestinal infection [Recovered/Resolved]

NARRATIVE: CASE EVENT DATE: 20190324
